FAERS Safety Report 7408756-0 (Version None)
Quarter: 2011Q2

REPORT INFORMATION
  Report Type: 
  Country: None (occurrence: None)
  Receive Date: 20110412
  Receipt Date: 20110329
  Transmission Date: 20111010
  Serious: Yes (Other)
  Sender: FDA-Public Use
  Company Number: JP-ELI_LILLY_AND_COMPANY-JP201104000039

PATIENT
  Age: 78 Year
  Sex: Male

DRUGS (2)
  1. GEMZAR [Suspect]
     Indication: BLADDER CANCER
     Route: 065
  2. CISPLATIN [Concomitant]
     Indication: BLADDER CANCER
     Route: 065

REACTIONS (2)
  - REFRACTORINESS TO PLATELET TRANSFUSION [None]
  - THROMBOCYTOPENIA [None]
